FAERS Safety Report 5124194-8 (Version None)
Quarter: 2006Q4

REPORT INFORMATION
  Report Type: 
  Country: None (occurrence: None)
  Receive Date: 20061010
  Receipt Date: 20060802
  Transmission Date: 20070319
  Serious: No
  Sender: FDA-Public Use
  Company Number: US-BRISTOL-MYERS SQUIBB COMPANY-13466248

PATIENT

DRUGS (1)
  1. AVAPRO [Suspect]

REACTIONS (1)
  - GLOMERULAR FILTRATION RATE DECREASED [None]
